FAERS Safety Report 21855647 (Version 2)
Quarter: 2023Q1

REPORT INFORMATION
  Report Type: Report from Study
  Country: DE (occurrence: DE)
  Receive Date: 20230112
  Receipt Date: 20230124
  Transmission Date: 20230417
  Serious: Yes (Hospitalization)
  Sender: FDA-Public Use
  Company Number: DE-BAXTER-2023BAX010375

PATIENT
  Age: 63 Year
  Sex: Male

DRUGS (7)
  1. AMINO ACIDS\DEXTROSE\ELECTROLYTES NOS\SOYBEAN OIL [Suspect]
     Active Substance: AMINO ACIDS\DEXTROSE\ELECTROLYTES NOS\SOYBEAN OIL
     Indication: Parenteral nutrition
     Dosage: 1820 MILLILITERS (ML), UNSPECIFIED FREQUENCY VIA CENTRALVENOUS ROUTE
     Route: 042
     Dates: start: 20221103
  2. AMINO ACIDS\DEXTROSE\ELECTROLYTES NOS\SOYBEAN OIL [Suspect]
     Active Substance: AMINO ACIDS\DEXTROSE\ELECTROLYTES NOS\SOYBEAN OIL
     Dosage: 1820 MILLILITERS (ML), UNSPECIFIED FREQUENCY VIA CENTRALVENOUS ROUTE
     Route: 042
     Dates: start: 20230117
  3. CERNEVIT [Suspect]
     Active Substance: VITAMINS
     Indication: Parenteral nutrition
     Dosage: 750 MILLIGRAMS (MG), UNSPECIFIED FREQUENCY VIA CENTRALVENOUS ROUTE
     Route: 042
     Dates: start: 20221103
  4. CERNEVIT [Suspect]
     Active Substance: VITAMINS
     Dosage: 750 MILLIGRAMS (MG), UNSPECIFIED FREQUENCY VIA CENTRALVENOUS ROUTE
     Route: 042
     Dates: start: 20230117
  5. ELECTROLYTES NOS\MINERALS [Suspect]
     Active Substance: ELECTROLYTES NOS\MINERALS
     Indication: Parenteral nutrition
     Dosage: 10 MILLILITERS (ML), UNSPECIFIED FREQUENCY VIA CENTRALVENOUS ROUTE
     Route: 042
     Dates: start: 20221103
  6. ELECTROLYTES NOS\MINERALS [Suspect]
     Active Substance: ELECTROLYTES NOS\MINERALS
     Dosage: 10 MILLILITERS (ML), UNSPECIFIED FREQUENCY VIA CENTRALVENOUS ROUTE
     Route: 042
     Dates: start: 20230117
  7. UNSPECIFIED INGREDIENT [Suspect]
     Active Substance: UNSPECIFIED INGREDIENT
     Route: 065

REACTIONS (1)
  - Abdominal pain upper [Recovered/Resolved]

NARRATIVE: CASE EVENT DATE: 20230110
